FAERS Safety Report 10829849 (Version 1)
Quarter: 2015Q1

REPORT INFORMATION
  Report Type: Report from Study
  Country: US (occurrence: US)
  Receive Date: 20150219
  Receipt Date: 20150219
  Transmission Date: 20150721
  Serious: No
  Sender: FDA-Public Use
  Company Number: US-ABBVIE-14P-163-1188265-00

PATIENT
  Age: 57 Year
  Sex: Male

DRUGS (16)
  1. IRON [Concomitant]
     Active Substance: IRON
     Indication: HAEMOLYTIC ANAEMIA
     Route: 048
  2. DIAZEPAM. [Concomitant]
     Active Substance: DIAZEPAM
     Indication: CYSTITIS INTERSTITIAL
     Route: 048
  3. BACLOFEN. [Concomitant]
     Active Substance: BACLOFEN
     Indication: BLADDER SPASM
     Route: 048
  4. AZOPT [Concomitant]
     Active Substance: BRINZOLAMIDE
     Indication: GLAUCOMA
     Dosage: ONE GTT OU
  5. PLAVIX [Concomitant]
     Active Substance: CLOPIDOGREL BISULFATE
     Indication: ANTICOAGULANT THERAPY
     Route: 048
  6. FOLIC ACID. [Concomitant]
     Active Substance: FOLIC ACID
     Indication: VITAMIN SUPPLEMENTATION
     Route: 048
  7. PYRIDIUM [Concomitant]
     Active Substance: PHENAZOPYRIDINE
     Indication: CYSTITIS INTERSTITIAL
  8. MIRALAX [Concomitant]
     Active Substance: POLYETHYLENE GLYCOL 3350
     Indication: PRODUCT USED FOR UNKNOWN INDICATION
     Dosage: EVERY ONE TO TWO DAYS SINCE STARTING HUMIRA
  9. HUMIRA [Suspect]
     Active Substance: ADALIMUMAB
     Indication: CROHN^S DISEASE
     Dates: start: 20131009
  10. REMERON [Concomitant]
     Active Substance: MIRTAZAPINE
     Indication: CYSTITIS INTERSTITIAL
  11. DICYCLOMINE [Concomitant]
     Active Substance: DICYCLOMINE HYDROCHLORIDE
     Indication: ABDOMINAL RIGIDITY
     Dosage: THREE IN ONE DAY
     Route: 048
  12. FLUOXETINE [Concomitant]
     Active Substance: FLUOXETINE\FLUOXETINE HYDROCHLORIDE
     Indication: DEPRESSION
     Route: 048
  13. FLOMAX [Concomitant]
     Active Substance: TAMSULOSIN HYDROCHLORIDE
     Indication: CYSTITIS INTERSTITIAL
     Route: 048
  14. VITAMIN D3 [Concomitant]
     Active Substance: CHOLECALCIFEROL
     Indication: PRODUCT USED FOR UNKNOWN INDICATION
     Route: 048
  15. TRAVATAN [Concomitant]
     Active Substance: TRAVOPROST
     Indication: MACULAR DEGENERATION
     Dosage: ONE GTT OU AT BED TIME
  16. PROCRIT [Concomitant]
     Active Substance: ERYTHROPOIETIN
     Indication: HAEMOLYTIC ANAEMIA

REACTIONS (3)
  - Injection site pain [Not Recovered/Not Resolved]
  - Contusion [Unknown]
  - Injection site bruising [Recovered/Resolved]

NARRATIVE: CASE EVENT DATE: 20131009
